FAERS Safety Report 7032273-3 (Version None)
Quarter: 2010Q4

REPORT INFORMATION
  Report Type: 
  Country: None (occurrence: None)
  Receive Date: 20101007
  Receipt Date: 20100426
  Transmission Date: 20110411
  Serious: Yes (Hospitalization)
  Sender: FDA-Public Use
  Company Number: FR-BRISTOL-MYERS SQUIBB COMPANY-15079171

PATIENT
  Age: 62 Year
  Sex: Male
  Weight: 72 kg

DRUGS (5)
  1. CETUXIMAB [Suspect]
     Indication: RECTAL CANCER
     Dosage: 460MG: 17AUG09-15SEP09(29D) 448MG:17DEC09- LAST DOSE: 10MAR2010
     Route: 042
     Dates: start: 20090817
  2. CAPECITABINE [Suspect]
     Indication: RECTAL CANCER
     Route: 048
     Dates: start: 20090817, end: 20090915
  3. OXALIPLATIN [Suspect]
     Indication: RECTAL CANCER
     Dosage: 92MG: 17AUG09-15SEP09(29D) 17DEC09- LAST DOSE: 03MAR2010
     Route: 042
     Dates: start: 20090817
  4. FOLINIC ACID [Suspect]
     Indication: RECTAL CANCER
     Dosage: LAST DOSE: 03MAR2010
     Route: 042
     Dates: start: 20091217
  5. FLUOROURACIL [Suspect]
     Indication: RECTAL CANCER
     Dosage: 4290MG: 17DEC09 LAST DOSE: 03MAR2010
     Route: 042
     Dates: start: 20091217

REACTIONS (1)
  - PELVIC VENOUS THROMBOSIS [None]
